FAERS Safety Report 11933679 (Version 1)
Quarter: 2016Q1

REPORT INFORMATION
  Report Type: Spontaneous
  Country: US (occurrence: US)
  Receive Date: 20160121
  Receipt Date: 20160121
  Transmission Date: 20160526
  Serious: No
  Sender: FDA-Public Use
  Company Number: US-DRREDDYS-USA/USA/15/0054160

PATIENT
  Sex: Female
  Weight: 45.8 kg

DRUGS (1)
  1. ZENATANE [Suspect]
     Active Substance: ISOTRETINOIN
     Indication: HIDRADENITIS
     Route: 048
     Dates: start: 20150814, end: 20151117

REACTIONS (3)
  - Off label use [Unknown]
  - Product quality issue [Unknown]
  - Drug ineffective [Unknown]
